FAERS Safety Report 8835870 (Version 2)
Quarter: 2012Q4

REPORT INFORMATION
  Report Type: 
  Country: JP (occurrence: JP)
  Receive Date: 20121011
  Receipt Date: 20121017
  Transmission Date: 20130627
  Serious: Yes (Other)
  Sender: FDA-Public Use
  Company Number: JP-JNJFOC-20121003766

PATIENT
  Age: 70 Year
  Sex: Female

DRUGS (4)
  1. TRAMCET [Suspect]
     Indication: PAIN
     Dosage: 2 tablets per day
     Route: 048
     Dates: start: 20121005
  2. TRAMCET [Suspect]
     Indication: PAIN
     Dosage: 2 tablets per day
     Route: 048
  3. TRAMCET [Suspect]
     Indication: PAIN
     Dosage: 4 tablets per day
     Route: 048
     Dates: start: 20121003, end: 20121004
  4. VOLTAREN [Concomitant]
     Indication: PAIN
     Route: 054
     Dates: start: 20121005

REACTIONS (2)
  - Dementia Alzheimer^s type [Recovered/Resolved]
  - Pain [Unknown]
